FAERS Safety Report 19573434 (Version 2)
Quarter: 2021Q4

REPORT INFORMATION
  Report Type: Report from Study
  Country: IT (occurrence: IT)
  Receive Date: 20210717
  Receipt Date: 20211020
  Transmission Date: 20220303
  Serious: Yes (Hospitalization)
  Sender: FDA-Public Use
  Company Number: None

PATIENT
  Age: 78 Year
  Sex: Female

DRUGS (14)
  1. OXALIPLATIN [Suspect]
     Active Substance: OXALIPLATIN
     Indication: Rectal adenocarcinoma
     Route: 042
     Dates: start: 20201222, end: 20210317
  2. LEVOLEUCOVORIN CALCIUM [Concomitant]
     Active Substance: LEVOLEUCOVORIN CALCIUM
     Route: 042
     Dates: start: 20201222
  3. BISOPROLOL FUMARATE [Concomitant]
     Active Substance: BISOPROLOL FUMARATE
     Route: 048
  4. Ondansetron Mylan generics Italy [Concomitant]
     Route: 042
     Dates: start: 20201222
  5. ZOFRAN [Concomitant]
     Active Substance: ONDANSETRON HYDROCHLORIDE
     Route: 048
  6. MICARDIS [Concomitant]
     Active Substance: TELMISARTAN
     Dosage: 80 MG
     Route: 048
  7. FLUOROURACIL [Concomitant]
     Active Substance: FLUOROURACIL
     Route: 042
     Dates: start: 20201222
  8. ENOXAPARIN SODIUM [Concomitant]
     Active Substance: ENOXAPARIN SODIUM
     Route: 058
  9. CETIRIZINE HYDROCHLORIDE [Concomitant]
     Active Substance: CETIRIZINE HYDROCHLORIDE
  10. RABEPRAZOLE SODIUM [Concomitant]
     Active Substance: RABEPRAZOLE SODIUM
     Route: 048
  11. RAMIPRIL [Concomitant]
     Active Substance: RAMIPRIL
     Route: 048
  12. DECADRON [Concomitant]
     Active Substance: DEXAMETHASONE
     Dosage: 8 MG / 2 ML SOLUTION FOR INJECTION 1 VIAL OF 2 ML
     Route: 042
     Dates: start: 20201222
  13. LUVION [Concomitant]
     Route: 048
  14. PREDNISONE [Concomitant]
     Active Substance: PREDNISONE

REACTIONS (10)
  - Dizziness [Recovered/Resolved]
  - Dysaesthesia [Recovered/Resolved]
  - Hyperhidrosis [Recovered/Resolved]
  - Balance disorder [Recovered/Resolved]
  - Throat tightness [Recovered/Resolved]
  - Paraesthesia [Recovered/Resolved]
  - Malaise [Recovered/Resolved]
  - Hyponatraemia [Recovered/Resolved]
  - Asthenia [Recovered/Resolved]
  - Chills [Recovered/Resolved]

NARRATIVE: CASE EVENT DATE: 20210317
